FAERS Safety Report 15462972 (Version 3)
Quarter: 2018Q4

REPORT INFORMATION
  Report Type: Spontaneous
  Country: US (occurrence: US)
  Receive Date: 20181004
  Receipt Date: 20181129
  Transmission Date: 20190204
  Serious: No
  Sender: FDA-Public Use
  Company Number: US-PFIZER INC-2018397463

PATIENT
  Age: 78 Year
  Sex: Female
  Weight: 70.3 kg

DRUGS (2)
  1. IBRANCE [Suspect]
     Active Substance: PALBOCICLIB
     Indication: BREAST CANCER METASTATIC
     Dosage: 125 MG, CYCLIC (DAYS 1-21 Q 28 DAYS/D1-D21 Q 28 D)
     Route: 048
     Dates: start: 20180920
  2. IBRANCE [Suspect]
     Active Substance: PALBOCICLIB
     Dosage: 100 MG, CYCLIC [D1-D21,Q 28 D]
     Route: 048
     Dates: start: 20180920

REACTIONS (9)
  - Eyelid irritation [Unknown]
  - Visual acuity reduced [Unknown]
  - Defaecation urgency [Unknown]
  - Sinus congestion [Unknown]
  - Sneezing [Unknown]
  - Pruritus [Recovering/Resolving]
  - Eye swelling [Recovering/Resolving]
  - Eyelids pruritus [Recovering/Resolving]
  - Burning sensation [Unknown]

NARRATIVE: CASE EVENT DATE: 201810
